FAERS Safety Report 20645432 (Version 13)
Quarter: 2024Q3

REPORT INFORMATION
  Report Type: Spontaneous
  Country: US (occurrence: US)
  Receive Date: 20220328
  Receipt Date: 20240822
  Transmission Date: 20241016
  Serious: Yes (Hospitalization)
  Sender: PFIZER
  Company Number: US-PFIZER INC-202200452321

PATIENT
  Age: 60 Year
  Sex: Male
  Weight: 122.45 kg

DRUGS (2)
  1. IBRANCE [Suspect]
     Active Substance: PALBOCICLIB
     Indication: Neoplasm malignant
     Dosage: ONCE DAILY FOR 3 WEEKS, FOLLOWED BY ONE WEEK OF REST
     Route: 048
     Dates: start: 202111
  2. IBRANCE [Suspect]
     Active Substance: PALBOCICLIB
     Indication: Bone cancer metastatic

REACTIONS (9)
  - Pain in extremity [Not Recovered/Not Resolved]
  - Bone pain [Not Recovered/Not Resolved]
  - Amnesia [Not Recovered/Not Resolved]
  - Cancer pain [Not Recovered/Not Resolved]
  - Neoplasm progression [Unknown]
  - Post-traumatic stress disorder [Not Recovered/Not Resolved]
  - Arthritis [Not Recovered/Not Resolved]
  - Hypotension [Unknown]
  - Memory impairment [Not Recovered/Not Resolved]
